FAERS Safety Report 25076348 (Version 1)
Quarter: 2025Q1

REPORT INFORMATION
  Report Type: Spontaneous
  Country: US (occurrence: US)
  Receive Date: 20250313
  Receipt Date: 20250313
  Transmission Date: 20250409
  Serious: No
  Sender: ELI LILLY AND COMPANY
  Company Number: US-ELI_LILLY_AND_COMPANY-US202503010443

PATIENT
  Age: 87 Year
  Sex: Male

DRUGS (5)
  1. HUMALOG [Suspect]
     Active Substance: INSULIN LISPRO
     Indication: Diabetes mellitus
     Dosage: 3 U, QID (2-3 UNITS FOUR TIMES A DAY)
     Route: 058
  2. HUMALOG [Suspect]
     Active Substance: INSULIN LISPRO
     Indication: Diabetes mellitus
     Dosage: 3 U, QID (2-3 UNITS FOUR TIMES A DAY)
     Route: 058
  3. HUMALOG [Suspect]
     Active Substance: INSULIN LISPRO
     Route: 058
  4. HUMALOG [Suspect]
     Active Substance: INSULIN LISPRO
     Route: 058
  5. LANTUS [Concomitant]
     Active Substance: INSULIN GLARGINE
     Indication: Diabetes mellitus
     Dosage: 21 U, EACH MORNING
     Route: 065

REACTIONS (3)
  - Weight decreased [Unknown]
  - Incorrect product administration duration [Unknown]
  - Incorrect dose administered [Unknown]
